FAERS Safety Report 5167315-3 (Version None)
Quarter: 2006Q4

REPORT INFORMATION
  Report Type: 
  Country: None (occurrence: None)
  Receive Date: 20061129
  Receipt Date: 20061113
  Transmission Date: 20070319
  Serious: Yes (Hospitalization)
  Sender: FDA-Public Use
  Company Number: 231078

PATIENT
  Age: 33 Year
  Sex: Female

DRUGS (1)
  1. RAPTIVA [Suspect]
     Indication: PSORIASIS
     Dosage: 0.5 ML, 1/WEEK SUBCUTANEOUS
     Route: 058
     Dates: start: 20060619, end: 20060904

REACTIONS (5)
  - ABDOMINAL PAIN UPPER [None]
  - BREAST PAIN [None]
  - ENDOCARDITIS [None]
  - LEUKOCYTOSIS [None]
  - MYOCARDITIS [None]
